FAERS Safety Report 15901426 (Version 3)
Quarter: 2019Q2

REPORT INFORMATION
  Report Type: Spontaneous
  Country: US (occurrence: US)
  Receive Date: 20190201
  Receipt Date: 20190403
  Transmission Date: 20190711
  Serious: No
  Sender: FDA-Public Use
  Company Number: US-PFIZER INC-2019048289

PATIENT
  Age: 59 Year
  Sex: Female

DRUGS (7)
  1. DOCETAXEL. [Suspect]
     Active Substance: DOCETAXEL
     Dosage: UNK
     Dates: start: 201302, end: 201405
  2. DOCETAXEL SUN [Suspect]
     Active Substance: DOCETAXEL
     Dosage: UNK
     Dates: start: 201302, end: 201405
  3. DOCETAXEL ACCORD [Suspect]
     Active Substance: DOCETAXEL
     Dosage: UNK
     Dates: start: 201302, end: 201405
  4. DOCETAXEL SANDOZ [Suspect]
     Active Substance: DOCETAXEL
     Dosage: UNK
     Dates: start: 201302, end: 201405
  5. DOCEFREZ [Suspect]
     Active Substance: DOCETAXEL ANHYDROUS
     Dosage: UNK
     Dates: start: 201302, end: 201405
  6. TAXOTERE [Suspect]
     Active Substance: DOCETAXEL
     Dosage: UNK
     Dates: start: 201302, end: 201405
  7. DOCETAXEL. [Suspect]
     Active Substance: DOCETAXEL
     Dosage: UNK
     Dates: start: 201302, end: 201405

REACTIONS (1)
  - Alopecia [Not Recovered/Not Resolved]
